FAERS Safety Report 20450225 (Version 1)
Quarter: 2022Q1

REPORT INFORMATION
  Report Type: Spontaneous
  Country: US (occurrence: US)
  Receive Date: 20220209
  Receipt Date: 20220209
  Transmission Date: 20220423
  Serious: No
  Sender: FDA-Public Use
  Company Number: US-CELGENE-USA-20220200817

PATIENT
  Age: 83 Year
  Sex: Male

DRUGS (2)
  1. REVLIMID [Suspect]
     Active Substance: LENALIDOMIDE
     Indication: Diffuse large B-cell lymphoma
     Dosage: 10 MILLIGRAM
     Route: 048
     Dates: start: 20210707
  2. REVLIMID [Suspect]
     Active Substance: LENALIDOMIDE
     Dosage: 1.875 MILLIGRAM
     Route: 048
     Dates: start: 202107

REACTIONS (2)
  - Immune system disorder [Unknown]
  - Malaise [Unknown]

NARRATIVE: CASE EVENT DATE: 20211209
